FAERS Safety Report 24321139 (Version 2)
Quarter: 2024Q3

REPORT INFORMATION
  Report Type: Report from Study
  Country: US (occurrence: US)
  Receive Date: 20240916
  Receipt Date: 20240925
  Transmission Date: 20241017
  Serious: No
  Sender: CHATTEM
  Company Number: US-OPELLA-2024OHG031568

PATIENT
  Sex: Female

DRUGS (2)
  1. ALLEGRA [Suspect]
     Active Substance: FEXOFENADINE HYDROCHLORIDE
     Indication: Product used for unknown indication
  2. ZYRTEC [Suspect]
     Active Substance: CETIRIZINE HYDROCHLORIDE
     Indication: Product used for unknown indication
     Dosage: ONLY TAKE IT AT NIGHT

REACTIONS (1)
  - Endometriosis [Unknown]
